FAERS Safety Report 9342571 (Version 2)
Quarter: 2013Q3

REPORT INFORMATION
  Report Type: Spontaneous
  Country: US (occurrence: US)
  Receive Date: 20130611
  Receipt Date: 20130711
  Transmission Date: 20140515
  Serious: Yes (Other)
  Sender: FDA-Public Use
  Company Number: US-BAYER-2013-069834

PATIENT
  Age: 53 Year
  Sex: Female
  Weight: 136 kg

DRUGS (4)
  1. BETASERON [Suspect]
     Indication: MULTIPLE SCLEROSIS
     Dosage: 8 MIU, QOD
     Route: 058
  2. PROVIGIL [Concomitant]
     Dosage: 100 MG, UNK
  3. FISH OIL [Concomitant]
  4. PREVACID [Concomitant]
     Dosage: 15 MG, UNK

REACTIONS (3)
  - Renal tubular disorder [Unknown]
  - Gastroenteritis viral [Unknown]
  - Nephrolithiasis [None]
